FAERS Safety Report 20344519 (Version 1)
Quarter: 2022Q1

REPORT INFORMATION
  Report Type: Spontaneous
  Country: US (occurrence: US)
  Receive Date: 20220118
  Receipt Date: 20220118
  Transmission Date: 20220424
  Serious: No
  Sender: FDA-Public Use
  Company Number: US-SANOFI-00929509

PATIENT
  Sex: Female

DRUGS (6)
  1. DUPIXENT [Suspect]
     Active Substance: DUPILUMAB
     Indication: Nasal polyps
     Dosage: LOADING DOSE
     Dates: start: 20220105, end: 20220105
  2. DUPIXENT [Suspect]
     Active Substance: DUPILUMAB
     Dosage: 300 MG, QOW
  3. BENADRYL [Concomitant]
     Active Substance: DIPHENHYDRAMINE HYDROCHLORIDE
  4. PREDNISONE [Concomitant]
     Active Substance: PREDNISONE
  5. ALLEGRA [FEXOFENADINE HYDROCHLORIDE] [Concomitant]
  6. ERYTHROMYCIN [Concomitant]
     Active Substance: ERYTHROMYCIN
     Route: 061

REACTIONS (4)
  - Conjunctivitis [Unknown]
  - Product use in unapproved indication [Unknown]
  - Swelling of eyelid [Unknown]
  - Somnolence [Unknown]
